FAERS Safety Report 15128096 (Version 1)
Quarter: 2018Q3

REPORT INFORMATION
  Report Type: Spontaneous
  Country: US (occurrence: US)
  Receive Date: 20180710
  Receipt Date: 20180710
  Transmission Date: 20181010
  Serious: Yes (Other)
  Sender: FDA-Public Use
  Company Number: PHEH2018US027938

PATIENT
  Sex: Male

DRUGS (4)
  1. AMIODARONE TEVA [Suspect]
     Active Substance: AMIODARONE
     Indication: ATRIAL FIBRILLATION
     Route: 065
  2. AMIODARONE HYDROCHLORIDE. [Suspect]
     Active Substance: AMIODARONE HYDROCHLORIDE
     Indication: ATRIAL FIBRILLATION
     Dosage: UNK
     Route: 048
     Dates: start: 201409
  3. AMIODARONE HYDROCHLORIDE. [Suspect]
     Active Substance: AMIODARONE HYDROCHLORIDE
     Indication: ATRIAL FIBRILLATION
     Route: 065
  4. AMIODARONE ZYDUS [Suspect]
     Active Substance: AMIODARONE
     Indication: ATRIAL FIBRILLATION
     Route: 065

REACTIONS (15)
  - Pulmonary toxicity [Unknown]
  - Fatigue [Unknown]
  - Product use in unapproved indication [Unknown]
  - Vitreous floaters [Unknown]
  - Coordination abnormal [Unknown]
  - Blindness [Unknown]
  - Renal disorder [Unknown]
  - Visual impairment [Unknown]
  - Dyspnoea [Unknown]
  - Cough [Unknown]
  - Heart rate irregular [Unknown]
  - Abdominal pain [Unknown]
  - Asthenia [Unknown]
  - Cardiac failure congestive [Unknown]
  - Dizziness [Unknown]

NARRATIVE: CASE EVENT DATE: 201509
